FAERS Safety Report 24602958 (Version 1)
Quarter: 2024Q4

REPORT INFORMATION
  Report Type: Spontaneous
  Country: PR (occurrence: PR)
  Receive Date: 20241111
  Receipt Date: 20241111
  Transmission Date: 20250115
  Serious: No
  Sender: BRISTOL-MYERS SQUIBB COMPANY
  Company Number: PR-BRISTOL-MYERS SQUIBB COMPANY-2024-175613

PATIENT
  Age: 80 Year
  Sex: Male

DRUGS (3)
  1. POMALYST [Suspect]
     Active Substance: POMALIDOMIDE
     Indication: Plasma cell myeloma
     Route: 048
     Dates: start: 20240919
  2. DEXAMETHASONE [Concomitant]
     Active Substance: DEXAMETHASONE
     Indication: Product used for unknown indication
  3. BORTEZOMIB [Concomitant]
     Active Substance: BORTEZOMIB
     Indication: Product used for unknown indication

REACTIONS (2)
  - Haemoglobin decreased [Not Recovered/Not Resolved]
  - Off label use [Unknown]
